FAERS Safety Report 7264361-0 (Version None)
Quarter: 2011Q1

REPORT INFORMATION
  Report Type: 
  Country: None (occurrence: None)
  Receive Date: 20110131
  Receipt Date: 20110120
  Transmission Date: 20110831
  Serious: Yes (Hospitalization)
  Sender: FDA-Public Use
  Company Number: US-BIOGENIDEC-2010BI044102

PATIENT
  Sex: Male

DRUGS (12)
  1. AVONEX [Suspect]
     Indication: MULTIPLE SCLEROSIS
     Route: 030
  2. ZINC SULFATE [Concomitant]
     Route: 048
  3. COLACE [Concomitant]
     Route: 048
  4. FOLIC ACID [Concomitant]
     Route: 048
  5. KLONOPIN [Concomitant]
     Route: 048
  6. BACLOFEN [Concomitant]
     Route: 048
  7. AVONEX [Suspect]
     Route: 030
     Dates: start: 19970101
  8. MULTI-VITAMIN [Concomitant]
     Route: 048
  9. CELEXA [Concomitant]
     Route: 048
  10. WELLBUTRIN [Concomitant]
     Route: 048
  11. ASCORBIC ACID [Concomitant]
  12. AMBIEN [Concomitant]
     Route: 048

REACTIONS (2)
  - MUSCLE SPASTICITY [None]
  - NEPHROLITHIASIS [None]
